FAERS Safety Report 7107422-9 (Version None)
Quarter: 2010Q4

REPORT INFORMATION
  Report Type: 
  Country: None (occurrence: None)
  Receive Date: 20101104
  Receipt Date: 20101028
  Transmission Date: 20110411
  Serious: Yes (Other)
  Sender: FDA-Public Use
  Company Number: 2010SP057562

PATIENT
  Age: 2 Week

DRUGS (1)
  1. MUSCULAX (VECURONIUM BROMIDE /00600002/) [Suspect]
     Indication: NEUROMUSCULAR BLOCKING THERAPY
     Dosage: ;IV
     Route: 042

REACTIONS (1)
  - PO2 DECREASED [None]
